FAERS Safety Report 9723007 (Version 5)
Quarter: 2014Q1

REPORT INFORMATION
  Report Type: Spontaneous
  Country: JP (occurrence: None)
  Receive Date: 20131126
  Receipt Date: 20140220
  Transmission Date: 20141002
  Serious: Yes (Death, Hospitalization, Other)
  Sender: FDA-Public Use
  Company Number: ADR-2013-02144

PATIENT
  Age: 26 Year
  Sex: Male
  Weight: 24 kg

DRUGS (1)
  1. GABALON INTRATHECAL [Suspect]
     Indication: MUSCLE SPASTICITY

REACTIONS (9)
  - Pneumonia [None]
  - Post procedural haemorrhage [None]
  - Acute respiratory failure [None]
  - Post procedural haemorrhage [None]
  - Post procedural complication [None]
  - Respiratory arrest [None]
  - Muscle spasticity [None]
  - Condition aggravated [None]
  - Urinary tract infection [None]
